FAERS Safety Report 5256294-6 (Version None)
Quarter: 2007Q1

REPORT INFORMATION
  Report Type: 
  Country: None (occurrence: None)
  Receive Date: 20061204
  Receipt Date: 20060821
  Transmission Date: 20070707
  Serious: No
  Sender: FDA-Public Use
  Company Number: 2006-BP-09704BP

PATIENT
  Age: 79 Year
  Sex: Female

DRUGS (5)
  1. SPIRIVA [Suspect]
     Indication: CHRONIC OBSTRUCTIVE PULMONARY DISEASE
     Dosage: 18 MCG (18 MCG, 1 IN 1 D), IH
     Route: 055
     Dates: start: 20060701
  2. AMBIEN [Concomitant]
  3. BLOOD PRESSURE MEDICATION (ALL OTHER THERAPEUTIC PRODUCTS) [Concomitant]
  4. PREMARIN [Concomitant]
  5. SYNTHROID [Concomitant]

REACTIONS (1)
  - DYSPNOEA [None]
